FAERS Safety Report 20010052 (Version 2)
Quarter: 2021Q4

REPORT INFORMATION
  Report Type: Spontaneous
  Country: US (occurrence: US)
  Receive Date: 20211029
  Receipt Date: 20211227
  Transmission Date: 20220303
  Serious: Yes (Life-Threatening, Hospitalization, Other)
  Sender: FDA-Public Use
  Company Number: US-MLMSERVICE-20211013-3163701-1

PATIENT

DRUGS (2)
  1. LAMOTRIGINE [Suspect]
     Active Substance: LAMOTRIGINE
     Indication: Bipolar disorder
     Dosage: UNK
     Route: 065
  2. LAMOTRIGINE [Suspect]
     Active Substance: LAMOTRIGINE
     Indication: Raynaud^s phenomenon

REACTIONS (7)
  - Systemic lupus erythematosus [Unknown]
  - Lupus nephritis [Unknown]
  - Acute kidney injury [Unknown]
  - Delirium [Unknown]
  - Pancreatitis acute [Unknown]
  - Transaminases increased [Unknown]
  - Haemophagocytic lymphohistiocytosis [Unknown]
